FAERS Safety Report 11896407 (Version 2)
Quarter: 2017Q1

REPORT INFORMATION
  Report Type: Spontaneous
  Country: US (occurrence: US)
  Receive Date: 20160107
  Receipt Date: 20170107
  Transmission Date: 20170428
  Serious: No
  Sender: FDA-Public Use
  Company Number: US-DRREDDYS-USA/USA/15/0053464

PATIENT
  Age: 54 Year
  Sex: Male
  Weight: 58.9 kg

DRUGS (3)
  1. HABITROL [Suspect]
     Active Substance: NICOTINE
     Indication: SMOKING CESSATION THERAPY
     Route: 061
     Dates: start: 201510
  2. HABITROL [Suspect]
     Active Substance: NICOTINE
     Route: 061
  3. HABITROL [Suspect]
     Active Substance: NICOTINE
     Route: 061

REACTIONS (2)
  - Nicotine dependence [Unknown]
  - Product quality issue [Unknown]
